FAERS Safety Report 13051119 (Version 2)
Quarter: 2017Q1

REPORT INFORMATION
  Report Type: Spontaneous
  Country: US (occurrence: US)
  Receive Date: 20161221
  Receipt Date: 20170201
  Transmission Date: 20170428
  Serious: No
  Sender: FDA-Public Use
  Company Number: US-PFIZER INC-2016586990

PATIENT
  Age: 93 Year
  Sex: Male

DRUGS (12)
  1. XANAX [Concomitant]
     Active Substance: ALPRAZOLAM
     Indication: DEMENTIA
  2. MIRALAX [Concomitant]
     Active Substance: POLYETHYLENE GLYCOL 3350
     Indication: CONSTIPATION
     Dosage: AS NEEDED, (OFF AND ON SINCE 2010)
     Dates: start: 2010
  3. SEROQUEL [Concomitant]
     Active Substance: QUETIAPINE FUMARATE
     Indication: DEMENTIA
  4. TRIAMTERENE. [Concomitant]
     Active Substance: TRIAMTERENE
     Dosage: (25/37.5 MG), 1X/DAY
     Dates: start: 201606
  5. DILTIAZEM. [Concomitant]
     Active Substance: DILTIAZEM
     Indication: CARDIAC DISORDER
     Dosage: 180 MG, 1X/DAY
     Dates: start: 201606
  6. SEROQUEL [Concomitant]
     Active Substance: QUETIAPINE FUMARATE
     Indication: AFFECTIVE DISORDER
     Dosage: 25 MG, 2X/DAY
     Dates: start: 201609
  7. XANAX [Concomitant]
     Active Substance: ALPRAZOLAM
     Indication: AFFECTIVE DISORDER
     Dosage: 0.5 MG, AS NEEDED EVERY 4 HOURS
     Dates: start: 201606
  8. IMMUNE PLUS [Concomitant]
     Indication: IMMUNISATION
     Dosage: 16 MG, DAILY
     Dates: start: 2000
  9. ADVIL [Suspect]
     Active Substance: IBUPROFEN
     Indication: BACK PAIN
     Dosage: 200 MG, 1X/DAY, (1/DAY)
     Dates: start: 201602, end: 20161210
  10. ADVIL [Suspect]
     Active Substance: IBUPROFEN
     Indication: PAIN
  11. COLACE [Concomitant]
     Active Substance: DOCUSATE SODIUM
     Indication: CONSTIPATION
     Dosage: 100 MG, AS NEEDED, (OFF AND ON SINCE 2010)
     Dates: start: 2010
  12. PROBULIN [Concomitant]
     Indication: PROPHYLAXIS
     Dosage: UNK, 1X/DAY (10 BILLION PROBIOTIC)
     Dates: start: 201606

REACTIONS (2)
  - Vomiting [Recovered/Resolved]
  - Productive cough [Recovered/Resolved]

NARRATIVE: CASE EVENT DATE: 201611
